FAERS Safety Report 6082911-7 (Version None)
Quarter: 2009Q1

REPORT INFORMATION
  Report Type: 
  Country: None (occurrence: None)
  Receive Date: 20090204
  Receipt Date: 20080311
  Transmission Date: 20090719
  Serious: No
  Sender: FDA-Public Use
  Company Number: 273067

PATIENT
  Age: 33 Year
  Sex: Female

DRUGS (3)
  1. NOVOLOG [Suspect]
     Indication: TYPE 1 DIABETES MELLITUS
     Dosage: SUBCUTANEOUS
     Route: 058
  2. LANTUS [Suspect]
     Indication: TYPE 1 DIABETES MELLITUS
     Dosage: 60 IU, SUBCUTANEOUS
     Route: 058
  3. ANTIHYPERTENSIVES [Concomitant]

REACTIONS (2)
  - HYPERGLYCAEMIA [None]
  - WRONG DRUG ADMINISTERED [None]
